FAERS Safety Report 9648455 (Version 1)
Quarter: 2013Q4

REPORT INFORMATION
  Report Type: Spontaneous
  Country: US (occurrence: None)
  Receive Date: 20131024
  Receipt Date: 20131024
  Transmission Date: 20140711
  Serious: Yes (Life-Threatening, Hospitalization)
  Sender: FDA-Public Use
  Company Number: 1224850-2013-0002

PATIENT
  Sex: Female

DRUGS (5)
  1. CALCIUM ACETATE [Suspect]
     Indication: BONE DISORDER
     Dosage: (2) 667MG TAB TID, PO
     Route: 048
  2. PERITONEAL DIALYSIS CYCLER SET [Concomitant]
  3. PERITONEAL DIALYSIS DELIVERY SYSTEM [Concomitant]
  4. DEFLEX [Concomitant]
  5. DEXTROSE [Concomitant]

REACTIONS (2)
  - Cardiac arrest [None]
  - Pain in extremity [None]
